FAERS Safety Report 7861723-5 (Version None)
Quarter: 2011Q4

REPORT INFORMATION
  Report Type: 
  Country: None (occurrence: None)
  Receive Date: 20111027
  Receipt Date: 20111024
  Transmission Date: 20120403
  Serious: Yes (Life-Threatening)
  Sender: FDA-Public Use
  Company Number: ES-MERCK-1110ESP00046

PATIENT
  Age: 36 Year
  Sex: Male

DRUGS (6)
  1. FUROSEMIDE [Suspect]
     Route: 042
     Dates: start: 20110416, end: 20110508
  2. LORAZEPAM [Suspect]
     Indication: INSOMNIA
     Route: 065
     Dates: start: 20110411, end: 20110508
  3. TRANEXAMIC ACID [Suspect]
     Indication: HAEMATURIA
     Route: 042
     Dates: start: 20110427, end: 20110508
  4. CANCIDAS [Suspect]
     Indication: BRONCHOPULMONARY ASPERGILLOSIS
     Route: 041
     Dates: start: 20110412
  5. AMPHOTERICIN B AND CHOLESTEROL AND DISTEAROYLPHOSPHATIDYLGLYCEROL AND [Suspect]
     Indication: BRONCHOPULMONARY ASPERGILLOSIS
     Route: 041
     Dates: start: 20110413
  6. MORPHINE [Suspect]
     Indication: PAIN
     Route: 042
     Dates: start: 20110428, end: 20110508

REACTIONS (3)
  - RESPIRATORY ARREST [None]
  - HYPOKALAEMIA [None]
  - HYPOTENSION [None]
